FAERS Safety Report 21236205 (Version 1)
Quarter: 2022Q3

REPORT INFORMATION
  Report Type: Spontaneous
  Country: US (occurrence: US)
  Receive Date: 20220822
  Receipt Date: 20220822
  Transmission Date: 20221027
  Serious: No
  Sender: FDA-Public Use
  Company Number: US-LUPIN PHARMACEUTICALS INC.-2022-10379

PATIENT
  Age: 22 Year
  Sex: Male

DRUGS (1)
  1. TESTOSTERONE [Suspect]
     Active Substance: TESTOSTERONE
     Indication: Virilism
     Dosage: 100 MILLIGRAM, QD, GEL
     Route: 065

REACTIONS (2)
  - Steatocystoma multiplex [Unknown]
  - Off label use [Unknown]
